FAERS Safety Report 12643393 (Version 1)
Quarter: 2016Q3

REPORT INFORMATION
  Report Type: Spontaneous
  Country: US (occurrence: US)
  Receive Date: 20160811
  Receipt Date: 20160811
  Transmission Date: 20161109
  Serious: No
  Sender: FDA-Public Use
  Company Number: US-BAYER-2016-147840

PATIENT
  Sex: Female
  Weight: 65.76 kg

DRUGS (1)
  1. MIRALAX [Suspect]
     Active Substance: POLYETHYLENE GLYCOL 3350
     Indication: CONSTIPATION
     Dosage: ONE DOSE
     Route: 048
     Dates: start: 2015

REACTIONS (6)
  - Abnormal faeces [Not Recovered/Not Resolved]
  - Flatulence [Not Recovered/Not Resolved]
  - Bowel movement irregularity [None]
  - Faeces soft [Recovered/Resolved]
  - Product use issue [None]
  - Diarrhoea [Recovered/Resolved]

NARRATIVE: CASE EVENT DATE: 2015
